FAERS Safety Report 6024614-0 (Version None)
Quarter: 2008Q4

REPORT INFORMATION
  Report Type: 
  Country: None (occurrence: None)
  Receive Date: 20081231
  Receipt Date: 20081219
  Transmission Date: 20090506
  Serious: Yes (Other)
  Sender: FDA-Public Use
  Company Number: US-PFIZER INC-2008160081

PATIENT
  Age: 38 Year
  Sex: Female

DRUGS (7)
  1. VIRACEPT [Suspect]
     Dosage: 2500 MG, UNK
     Route: 048
     Dates: start: 20080619, end: 20080731
  2. COMBIVIR [Concomitant]
     Dosage: 900 MG, UNK
     Route: 048
     Dates: start: 20080101, end: 20080731
  3. NORVIR [Concomitant]
     Dosage: 100 MG, UNK
     Route: 048
     Dates: start: 20080101, end: 20080619
  4. NORVIR [Concomitant]
     Dosage: 100 MG, UNK
     Route: 048
     Dates: start: 20080731
  5. INVIRASE [Suspect]
     Dosage: 2000 MG, UNK
     Route: 048
     Dates: start: 20080731
  6. VIREAD [Suspect]
     Dosage: 300 MG, UNK
     Route: 048
     Dates: start: 20080731
  7. RETROVIR [Suspect]
     Dosage: 600 MG, UNK
     Route: 048
     Dates: start: 20080731

REACTIONS (1)
  - INTRA-UTERINE DEATH [None]
